FAERS Safety Report 8449549-5 (Version None)
Quarter: 2012Q2

REPORT INFORMATION
  Report Type: 
  Country: None (occurrence: None)
  Receive Date: 20120620
  Receipt Date: 20120614
  Transmission Date: 20120825
  Serious: Yes (Hospitalization)
  Sender: FDA-Public Use
  Company Number: FR-AMGEN-FRASP2012037127

PATIENT
  Age: 30 Year
  Sex: Female

DRUGS (2)
  1. ANTINEOPLASTIC AGENTS [Concomitant]
     Indication: BREAST CANCER
  2. NEULASTA [Suspect]
     Indication: CHEMOTHERAPY

REACTIONS (1)
  - PNEUMONIA [None]
